FAERS Safety Report 5443246-6 (Version None)
Quarter: 2007Q3

REPORT INFORMATION
  Report Type: 
  Country: None (occurrence: None)
  Receive Date: 20070831
  Receipt Date: 20070831
  Transmission Date: 20080115
  Serious: Yes (Other)
  Sender: FDA-Public Use
  Company Number: None

PATIENT
  Sex: Male

DRUGS (4)
  1. CORICIDIN HBP COUGH + COLD [Suspect]
     Indication: NASOPHARYNGITIS
     Dosage: 1 DF; ONCE; PO
     Route: 048
     Dates: start: 20070607
  2. CORICIDIN HBP COUGH + COLD [Suspect]
     Indication: NASOPHARYNGITIS
     Dosage: 1 DF; ONCE; PO
     Route: 048
     Dates: start: 20070608
  3. CORICIDIN HBP COUGH + COLD [Suspect]
     Indication: NASOPHARYNGITIS
     Dosage: 1 DF; ONCE; PO
     Route: 048
     Dates: start: 20070608
  4. BENICAR [Suspect]
     Indication: HYPERTENSION

REACTIONS (11)
  - ABDOMINAL PAIN UPPER [None]
  - DEVICE BREAKAGE [None]
  - EXCORIATION [None]
  - EYELID BLEEDING [None]
  - FALL [None]
  - HAEMORRHAGE [None]
  - HEAD INJURY [None]
  - LOSS OF CONSCIOUSNESS [None]
  - SKIN LACERATION [None]
  - TOOTH FRACTURE [None]
  - TOOTH LOSS [None]
